FAERS Safety Report 4693602-9 (Version None)
Quarter: 2005Q2

REPORT INFORMATION
  Report Type: 
  Country: None (occurrence: None)
  Receive Date: 20050615
  Receipt Date: 20050606
  Transmission Date: 20051028
  Serious: Yes (Other)
  Sender: FDA-Public Use
  Company Number: 2005084987

PATIENT
  Age: 75 Year
  Sex: Female
  Weight: 73.4827 kg

DRUGS (4)
  1. LIPITOR [Suspect]
     Indication: BLOOD CHOLESTEROL INCREASED
     Dosage: 10 MG (10 MG, 1 IN 1 D) ORAL
     Route: 048
  2. HYDROCHLOROTHIAZIDE [Suspect]
     Indication: HYPERTENSION
  3. NORVASC [Concomitant]
  4. ALTACE [Concomitant]

REACTIONS (4)
  - LIGAMENT INJURY [None]
  - MENISCUS LESION [None]
  - MUSCLE SPASMS [None]
  - SKIN CANCER [None]
